FAERS Safety Report 24189276 (Version 1)
Quarter: 2024Q3

REPORT INFORMATION
  Report Type: Spontaneous
  Country: US (occurrence: US)
  Receive Date: 20240808
  Receipt Date: 20240808
  Transmission Date: 20241017
  Serious: Yes (Other)
  Sender: BAYER
  Company Number: US-BAYER-2024A112842

PATIENT

DRUGS (1)
  1. CIPROFLOXACIN [Suspect]
     Active Substance: CIPROFLOXACIN
     Dosage: UNK

REACTIONS (5)
  - Acute kidney injury [None]
  - Urinary tract infection [None]
  - Dizziness [None]
  - Nausea [None]
  - Abdominal pain [None]
